FAERS Safety Report 8327358-5 (Version None)
Quarter: 2012Q2

REPORT INFORMATION
  Report Type: 
  Country: None (occurrence: None)
  Receive Date: 20120502
  Receipt Date: 20120424
  Transmission Date: 20120825
  Serious: No
  Sender: FDA-Public Use
  Company Number: US-BIOGENIDEC-2012BI014317

PATIENT
  Sex: Male

DRUGS (1)
  1. TYSABRI [Suspect]
     Indication: MULTIPLE SCLEROSIS
     Route: 042
     Dates: start: 20080530

REACTIONS (6)
  - COGNITIVE DISORDER [None]
  - HAEMATOCHEZIA [None]
  - SENSATION OF HEAVINESS [None]
  - EYE PAIN [None]
  - NAUSEA [None]
  - ABDOMINAL PAIN UPPER [None]
